FAERS Safety Report 8796721 (Version 1)
Quarter: 2012Q4

REPORT INFORMATION
  Report Type: 
  Country: US (occurrence: US)
  Receive Date: 20120919
  Receipt Date: 20120919
  Transmission Date: 20130627
  Serious: Yes (Other)
  Sender: FDA-Public Use
  Company Number: US-009507513-1209USA007059

PATIENT

DRUGS (4)
  1. ISENTRESS [Suspect]
     Route: 064
  2. .ALPHA.-AMYLASE A TYPE-1/2 [Suspect]
     Route: 064
  3. FUZEON [Suspect]
     Route: 064
  4. ZIDOVUDINE [Suspect]
     Route: 064

REACTIONS (3)
  - Premature baby [Unknown]
  - Foetal exposure during pregnancy [Unknown]
  - Maternal drugs affecting foetus [None]
